FAERS Safety Report 17705190 (Version 2)
Quarter: 2020Q2

REPORT INFORMATION
  Report Type: Spontaneous
  Country: US (occurrence: US)
  Receive Date: 20200424
  Receipt Date: 20200428
  Transmission Date: 20200714
  Serious: Yes (Other)
  Sender: FDA-Public Use
  Company Number: US-PFIZER INC-2017110682

PATIENT
  Age: 64 Year
  Sex: Female
  Weight: 66.68 kg

DRUGS (8)
  1. OMEPRAZOLE. [Concomitant]
     Active Substance: OMEPRAZOLE
     Indication: COUGH
     Dosage: 20 MG, ONCE A DAY
  2. FLUTICASONE. [Concomitant]
     Active Substance: FLUTICASONE
     Indication: HYPERSENSITIVITY
     Dosage: 50 UG, ONE SPRAY EACH NOSTRIL DAILY
     Route: 045
  3. AMBIEN [Concomitant]
     Active Substance: ZOLPIDEM TARTRATE
     Indication: INSOMNIA
     Dosage: 10 MG, (ONE AT A TIME)
  4. CELEBREX [Suspect]
     Active Substance: CELECOXIB
     Indication: RHEUMATOID ARTHRITIS
     Dosage: UNK
  5. PROVENTIL [Concomitant]
     Active Substance: ALBUTEROL
     Indication: COUGH
     Dosage: INHALER, AS NEEDED
  6. CELEBREX [Suspect]
     Active Substance: CELECOXIB
     Indication: FIBROMYALGIA
     Dosage: 200 MG, 1X/DAY
     Route: 048
     Dates: start: 201608
  7. AMITRIPTYLINE [Concomitant]
     Active Substance: AMITRIPTYLINE
     Indication: FIBROMYALGIA
     Dosage: 10 MG, TAKES TWO AT BEDTIME, TOTAL DOSE 20MG
  8. VALIUM [Concomitant]
     Active Substance: DIAZEPAM
     Indication: ANXIETY
     Dosage: 10 MG, THREE TIMES DAILY
     Dates: start: 2016

REACTIONS (7)
  - Product use in unapproved indication [Unknown]
  - Pain [Not Recovered/Not Resolved]
  - Off label use [Unknown]
  - Pain [Unknown]
  - Gait disturbance [Unknown]
  - Deafness [Unknown]
  - Nasopharyngitis [Unknown]
